FAERS Safety Report 21435836 (Version 2)
Quarter: 2022Q4

REPORT INFORMATION
  Report Type: Spontaneous
  Country: US (occurrence: US)
  Receive Date: 20221010
  Receipt Date: 20221024
  Transmission Date: 20230113
  Serious: Yes (Other)
  Sender: FDA-Public Use
  Company Number: US-UPSHER-SMITH LABORATORIES, LLC-2022USL00788

PATIENT
  Sex: Female
  Weight: 56.689 kg

DRUGS (1)
  1. ISOTRETINOIN [Suspect]
     Active Substance: ISOTRETINOIN
     Indication: Acne
     Dosage: 20 MG, 1X/DAY
     Route: 048
     Dates: end: 20220926

REACTIONS (2)
  - Irritability [Unknown]
  - Inappropriate schedule of product administration [Recovered/Resolved]
